FAERS Safety Report 9778354 (Version 2)
Quarter: 2014Q1

REPORT INFORMATION
  Report Type: Report from Study
  Country: IT (occurrence: IT)
  Receive Date: 20131223
  Receipt Date: 20140205
  Transmission Date: 20141002
  Serious: Yes (Life-Threatening, Hospitalization, Other)
  Sender: FDA-Public Use
  Company Number: IT-ALEXION PHARMACEUTICALS INC.-A201304003

PATIENT
  Age: 27 Year
  Sex: 0
  Weight: 72.11 kg

DRUGS (5)
  1. ECULIZUMAB [Suspect]
     Indication: HAEMOLYTIC URAEMIC SYNDROME
     Dosage: 1200 MG, CYCLIC (EVERY 21 DAYS)
     Route: 042
     Dates: start: 20110915, end: 20130613
  2. ECULIZUMAB [Suspect]
     Dosage: 1200 MG, UNK
     Route: 042
  3. DELTACORTENE [Concomitant]
  4. CELLCEPT                           /01275102/ [Concomitant]
     Dosage: 1000 MG
  5. PROGRAF [Concomitant]
     Dosage: 3.5 MG

REACTIONS (1)
  - Meningococcal sepsis [Recovered/Resolved]
